APPROVED DRUG PRODUCT: LEVALBUTEROL HYDROCHLORIDE
Active Ingredient: LEVALBUTEROL HYDROCHLORIDE
Strength: EQ 0.0103% BASE
Dosage Form/Route: SOLUTION;INHALATION
Application: A207820 | Product #001
Applicant: SUN PHARMACEUTICAL INDUSTRIES LTD
Approved: Nov 5, 2018 | RLD: No | RS: No | Type: DISCN